FAERS Safety Report 22290859 (Version 1)
Quarter: 2023Q2

REPORT INFORMATION
  Report Type: Report from Study
  Country: NL (occurrence: NL)
  Receive Date: 20230506
  Receipt Date: 20230506
  Transmission Date: 20230721
  Serious: Yes (Death)
  Sender: FDA-Public Use
  Company Number: NL-MYLANLABS-2023M1046415

PATIENT
  Age: 54 Year
  Sex: Male

DRUGS (1)
  1. CREON [Suspect]
     Active Substance: PANCRELIPASE AMYLASE\PANCRELIPASE LIPASE\PANCRELIPASE PROTEASE
     Indication: Pancreatic carcinoma
     Dosage: UNK (10000)?CREON 25000 CAPSULES
     Route: 048
     Dates: start: 20211217

REACTIONS (1)
  - Death [Fatal]

NARRATIVE: CASE EVENT DATE: 20230408
